FAERS Safety Report 8014511-3 (Version None)
Quarter: 2011Q4

REPORT INFORMATION
  Report Type: 
  Country: None (occurrence: None)
  Receive Date: 20111229
  Receipt Date: 20111228
  Transmission Date: 20120403
  Serious: Yes (Hospitalization)
  Sender: FDA-Public Use
  Company Number: BR-BAYER-2011-124138

PATIENT
  Sex: Female

DRUGS (1)
  1. INTERFERON BETA-1B [Suspect]
     Indication: PROGRESSIVE MULTIPLE SCLEROSIS
     Dosage: 9.6 MIU, QOD
     Route: 058
     Dates: start: 20030101

REACTIONS (13)
  - BLOOD PRESSURE FLUCTUATION [None]
  - MYELITIS [None]
  - DEPRESSION [None]
  - INSOMNIA [None]
  - CHILLS [None]
  - LIMB DISCOMFORT [None]
  - INJECTION SITE DISCOLOURATION [None]
  - HYPERHIDROSIS [None]
  - CRYING [None]
  - PYREXIA [None]
  - INJECTION SITE MASS [None]
  - SYNCOPE [None]
  - MULTIPLE SCLEROSIS [None]
